FAERS Safety Report 5360684-0 (Version None)
Quarter: 2007Q2

REPORT INFORMATION
  Report Type: 
  Country: None (occurrence: None)
  Receive Date: 20070618
  Receipt Date: 20070608
  Transmission Date: 20071010
  Serious: Yes (Death, Hospitalization)
  Sender: FDA-Public Use
  Company Number: IT-ROCHE-489809

PATIENT
  Age: 81 Year
  Sex: Male

DRUGS (11)
  1. TICLID [Suspect]
     Route: 048
     Dates: start: 20061003, end: 20070112
  2. ROCEPHIN [Concomitant]
     Indication: PNEUMONIA
     Route: 042
     Dates: start: 20070108
  3. FUROSEMIDE [Concomitant]
     Route: 048
     Dates: start: 20061003
  4. SPIRONOLACTONE [Concomitant]
     Route: 048
     Dates: start: 20061003
  5. ATORVASTATIN CALCIUM [Concomitant]
     Route: 048
     Dates: start: 20061003
  6. MAGALDRATE [Concomitant]
     Dosage: 1 TEASPOON.
     Route: 048
     Dates: start: 20061003
  7. OMEPRAZOLE [Concomitant]
     Route: 048
     Dates: start: 20061003
  8. CALCITRIOL [Concomitant]
     Route: 048
     Dates: start: 20061003
  9. ALLOPURINOL [Concomitant]
     Route: 048
     Dates: start: 20061003
  10. LERCANIDIPINE [Concomitant]
     Route: 048
     Dates: start: 20061003
  11. PREDNISONE TAB [Concomitant]
     Route: 048
     Dates: start: 20061003

REACTIONS (2)
  - AGRANULOCYTOSIS [None]
  - PNEUMONIA [None]
